FAERS Safety Report 20127359 (Version 1)
Quarter: 2021Q4

REPORT INFORMATION
  Report Type: Spontaneous
  Country: US (occurrence: US)
  Receive Date: 20211129
  Receipt Date: 20211129
  Transmission Date: 20220303
  Serious: No
  Sender: FDA-Public Use
  Company Number: US-CELGENE-USA-20211105950

PATIENT
  Sex: Female

DRUGS (1)
  1. ABRAXANE [Suspect]
     Active Substance: PACLITAXEL
     Indication: Product used for unknown indication
     Dosage: DOSE : UNAVAILABLE;     FREQ : ^199MG^ INTRAVENOUSLY ON DAYS 1, 8, AND 15 OUT OF A 28 DAY CYCLE
     Route: 041

REACTIONS (2)
  - Fall [Unknown]
  - Rib fracture [Unknown]
